FAERS Safety Report 19589778 (Version 1)
Quarter: 2021Q3

REPORT INFORMATION
  Report Type: Spontaneous
  Country: GB (occurrence: GB)
  Receive Date: 20210721
  Receipt Date: 20210721
  Transmission Date: 20211014
  Serious: Yes (Other)
  Sender: FDA-Public Use
  Company Number: GB-ASTRAZENECA-2021A482982

PATIENT
  Age: 32 Year
  Sex: Female

DRUGS (4)
  1. ADRENALINE [Concomitant]
     Active Substance: EPINEPHRINE
  2. ADRENALINE [Concomitant]
     Active Substance: EPINEPHRINE
  3. PFIZER?BIONTECH COVID?19 VACCINE [Suspect]
     Active Substance: TOZINAMERAN
     Dosage: DOSE 1
     Route: 065
     Dates: start: 20210530
  4. DAXAS [Suspect]
     Active Substance: ROFLUMILAST
     Dosage: UNKNOWN
     Route: 065

REACTIONS (2)
  - Lip swelling [Unknown]
  - Anaphylactic reaction [Recovered/Resolved]

NARRATIVE: CASE EVENT DATE: 20210530
